FAERS Safety Report 6286849-1 (Version None)
Quarter: 2009Q3

REPORT INFORMATION
  Report Type: 
  Country: None (occurrence: None)
  Receive Date: 20090728
  Receipt Date: 20090717
  Transmission Date: 20100115
  Serious: Yes (Other)
  Sender: FDA-Public Use
  Company Number: DE-GILEAD-E2B_00000366

PATIENT
  Sex: Female

DRUGS (2)
  1. AMBRISENTAN [Suspect]
     Indication: PULMONARY ARTERIAL HYPERTENSION
     Route: 048
     Dates: start: 20080101, end: 20090101
  2. FALITHROM [Suspect]
     Indication: THROMBOSIS
     Dates: start: 20080701, end: 20090501

REACTIONS (1)
  - HEPATITIS [None]
